FAERS Safety Report 21838762 (Version 1)
Quarter: 2023Q1

REPORT INFORMATION
  Report Type: Spontaneous
  Country: US (occurrence: None)
  Receive Date: 20230107
  Receipt Date: 20230107
  Transmission Date: 20230418
  Serious: Yes (Hospitalization)
  Sender: FDA-Public Use
  Company Number: None

PATIENT
  Age: 66 Year
  Sex: Male
  Weight: 75 kg

DRUGS (1)
  1. PALIPERIDONE PALMITATE [Suspect]
     Active Substance: PALIPERIDONE PALMITATE
     Indication: Schizophrenia
     Dosage: FREQUENCY : UNKNOWN;?
     Route: 030
     Dates: start: 20220328, end: 20220914

REACTIONS (4)
  - Hypothermia [None]
  - Dizziness [None]
  - Mental status changes [None]
  - Dysarthria [None]

NARRATIVE: CASE EVENT DATE: 20221212
